FAERS Safety Report 7757362-7 (Version None)
Quarter: 2011Q3

REPORT INFORMATION
  Report Type: 
  Country: None (occurrence: None)
  Receive Date: 20110916
  Receipt Date: 20110906
  Transmission Date: 20111222
  Serious: Yes (Other)
  Sender: FDA-Public Use
  Company Number: US-ELI_LILLY_AND_COMPANY-US201109002464

PATIENT
  Age: 64 Year
  Sex: Female

DRUGS (5)
  1. ZOCOR [Concomitant]
     Dosage: UNK, UNKNOWN
     Dates: start: 20110101
  2. CYMBALTA [Suspect]
     Dosage: 60 MG, UNKNOWN
     Dates: start: 20110101
  3. CYMBALTA [Suspect]
     Indication: MAJOR DEPRESSION
     Dosage: UNK, UNKNOWN
     Dates: start: 20090101
  4. CYMBALTA [Suspect]
     Dosage: UNK, UNKNOWN
     Dates: start: 20110101
  5. ZOCOR [Concomitant]
     Dosage: UNK, UNKNOWN
     Dates: start: 20090101

REACTIONS (4)
  - ASPARTATE AMINOTRANSFERASE INCREASED [None]
  - BREAST CANCER [None]
  - ALANINE AMINOTRANSFERASE INCREASED [None]
  - DRUG INTERACTION [None]
